FAERS Safety Report 9424404 (Version 1)
Quarter: 2013Q3

REPORT INFORMATION
  Report Type: Spontaneous
  Country: FR (occurrence: FR)
  Receive Date: 20130729
  Receipt Date: 20130729
  Transmission Date: 20140515
  Serious: Yes (Other)
  Sender: FDA-Public Use
  Company Number: FR-JNJFOC-20130713637

PATIENT
  Age: 54 Year
  Sex: Male

DRUGS (10)
  1. XARELTO [Suspect]
     Indication: EMBOLISM VENOUS
     Route: 048
  2. XARELTO [Suspect]
     Indication: EMBOLISM VENOUS
     Route: 048
     Dates: start: 20130619
  3. XARELTO [Suspect]
     Indication: DEEP VEIN THROMBOSIS
     Route: 048
  4. XARELTO [Suspect]
     Indication: DEEP VEIN THROMBOSIS
     Route: 048
     Dates: start: 20130619
  5. LOXAPAC [Concomitant]
     Route: 065
     Dates: end: 20130705
  6. CLOPIXOL [Concomitant]
     Route: 065
  7. HALDOL [Concomitant]
     Route: 065
     Dates: end: 20130705
  8. TERCIAN [Concomitant]
     Route: 065
     Dates: end: 20130705
  9. THERALENE [Concomitant]
     Route: 065
     Dates: end: 20130705
  10. VALIUM [Concomitant]
     Route: 065

REACTIONS (1)
  - Hypokalaemia [Not Recovered/Not Resolved]
